FAERS Safety Report 4368261-5 (Version None)
Quarter: 2004Q2

REPORT INFORMATION
  Report Type: 
  Country: None (occurrence: None)
  Receive Date: 20040525
  Receipt Date: 20040507
  Transmission Date: 20050107
  Serious: Yes (Other)
  Sender: FDA-Public Use
  Company Number: USA040259396

PATIENT
  Age: 30 Year
  Sex: Male
  Weight: 136 kg

DRUGS (3)
  1. STRATTERA [Suspect]
     Indication: ATTENTION DEFICIT/HYPERACTIVITY DISORDER
     Dosage: 80 MG DAY
     Dates: start: 20031201
  2. PAXIL [Concomitant]
  3. CONCERTA [Concomitant]

REACTIONS (1)
  - GRAND MAL CONVULSION [None]
